FAERS Safety Report 24588824 (Version 1)
Quarter: 2024Q4

REPORT INFORMATION
  Report Type: Spontaneous
  Country: US (occurrence: US)
  Receive Date: 20241107
  Receipt Date: 20241107
  Transmission Date: 20250114
  Serious: No
  Sender: PFIZER
  Company Number: US-PFIZER INC-202400295416

PATIENT
  Age: 14 Year
  Sex: Male
  Weight: 55.79 kg

DRUGS (2)
  1. LITFULO [Suspect]
     Active Substance: RITLECITINIB TOSYLATE
     Indication: Alopecia areata
     Dosage: 50 MG, 1X/DAY
     Route: 048
     Dates: start: 202311
  2. EQUATE MULTIVITAMIN GUMMIE [Concomitant]
     Dosage: 26 UG, 1X/DAY

REACTIONS (1)
  - Therapeutic product effect decreased [Recovering/Resolving]

NARRATIVE: CASE EVENT DATE: 20240601
